FAERS Safety Report 15457855 (Version 1)
Quarter: 2018Q4

REPORT INFORMATION
  Report Type: Report from Study
  Country: US (occurrence: US)
  Receive Date: 20181003
  Receipt Date: 20181003
  Transmission Date: 20190204
  Serious: Yes (Other)
  Sender: FDA-Public Use
  Company Number: US-CONCORDIA PHARMACEUTICALS INC.-GSH201809-003420

PATIENT
  Age: 53 Year
  Sex: Female

DRUGS (1)
  1. PLAQUENIL [Suspect]
     Active Substance: HYDROXYCHLOROQUINE SULFATE
     Indication: SYSTEMIC LUPUS ERYTHEMATOSUS
     Dosage: BASED ON ACTUAL BODY WEIGHT WAS 6.8 MG/KG/DAY FOR 38 YEARS
     Route: 065

REACTIONS (3)
  - Toxicity to various agents [Unknown]
  - Retinopathy [Unknown]
  - Retinal telangiectasia [Unknown]
